FAERS Safety Report 20566307 (Version 4)
Quarter: 2023Q2

REPORT INFORMATION
  Report Type: Spontaneous
  Country: US (occurrence: US)
  Receive Date: 20220308
  Receipt Date: 20230519
  Transmission Date: 20230721
  Serious: Yes (Hospitalization, Disabling, Other)
  Sender: FDA-Public Use
  Company Number: US-ORGANON-O2203USA000482

PATIENT
  Sex: Male

DRUGS (1)
  1. SINGULAIR [Suspect]
     Active Substance: MONTELUKAST SODIUM
     Dosage: UNK
     Route: 048
     Dates: start: 20030503, end: 20100114

REACTIONS (4)
  - Neuropsychiatric symptoms [Not Recovered/Not Resolved]
  - Major depression [Recovering/Resolving]
  - Substance abuse [Unknown]
  - Generalised anxiety disorder [Recovering/Resolving]

NARRATIVE: CASE EVENT DATE: 20090101
